FAERS Safety Report 25209787 (Version 1)
Quarter: 2025Q2

REPORT INFORMATION
  Report Type: Spontaneous
  Country: US (occurrence: US)
  Receive Date: 20250417
  Receipt Date: 20250417
  Transmission Date: 20250717
  Serious: No
  Sender: MYLAN
  Company Number: US-MYLANLABS-2025M1032046

PATIENT
  Sex: Male

DRUGS (4)
  1. PRASUGREL [Suspect]
     Active Substance: PRASUGREL
     Indication: Product used for unknown indication
  2. PRASUGREL [Suspect]
     Active Substance: PRASUGREL
     Route: 065
  3. PRASUGREL [Suspect]
     Active Substance: PRASUGREL
     Route: 065
  4. PRASUGREL [Suspect]
     Active Substance: PRASUGREL

REACTIONS (1)
  - Recalled product administered [Unknown]
